FAERS Safety Report 7124609 (Version 4)
Quarter: 2013Q3

REPORT INFORMATION
  Report Type: Spontaneous
  Country: None (occurrence: None)
  Receive Date: 20090908
  Receipt Date: 20130715
  Transmission Date: 20140515
  Serious: Yes (Death, Hospitalization)
  Sender: FDA-Public Use
  Company Number: AUR-APU-2009-00559

PATIENT
  Age: 25 Day
  Sex: Male

DRUGS (6)
  1. ZIDOVUDINE [Suspect]
     Indication: PROPHYLAXIS AGAINST HIV INFECTION
  2. ZIDOVUDINE [Suspect]
  3. NEVIRAPINE TABLETS/ HETERO LABS, LTD [Suspect]
     Indication: PROPHYLAXIS AGAINST HIV INFECTION
  4. NEVIRAPINE TABLETS/ HETERO LABS, LTD [Suspect]
  5. EMTRICITABINE+TENOFOVIR [Suspect]
     Indication: PROPHYLAXIS AGAINST HIV INFECTION
     Dosage: 1 DOSE AFTER BIRTH
  6. EMTRICITABINE+TENOFOVIR [Suspect]
     Dosage: 1 DOSE AFTER BIRTH

REACTIONS (4)
  - Gastroenteritis [None]
  - Death neonatal [None]
  - Maternal drugs affecting foetus [None]
  - Caesarean section [None]
